FAERS Safety Report 6129658-6 (Version None)
Quarter: 2009Q1

REPORT INFORMATION
  Report Type: 
  Country: None (occurrence: None)
  Receive Date: 20090324
  Receipt Date: 20090312
  Transmission Date: 20090719
  Serious: Yes (Hospitalization, Other)
  Sender: FDA-Public Use
  Company Number: US-ELI_LILLY_AND_COMPANY-US200903003021

PATIENT

DRUGS (7)
  1. CYMBALTA [Suspect]
     Indication: SLEEP DISORDER
     Dosage: 60 MG, UNK
     Dates: start: 20090201
  2. PROGRAF [Concomitant]
  3. CELLCEPT [Concomitant]
  4. PREDNISONE [Concomitant]
  5. BACTRIM [Concomitant]
  6. SEROQUEL [Concomitant]
  7. VALTREX [Concomitant]

REACTIONS (11)
  - CONTUSION [None]
  - CONVULSION [None]
  - DEHYDRATION [None]
  - DIZZINESS [None]
  - DRUG INEFFECTIVE [None]
  - FAECAL INCONTINENCE [None]
  - FALL [None]
  - LUNG INFECTION [None]
  - SOMNOLENCE [None]
  - SYNCOPE [None]
  - URINARY INCONTINENCE [None]
